FAERS Safety Report 8511615-3 (Version None)
Quarter: 2012Q3

REPORT INFORMATION
  Report Type: 
  Country: None (occurrence: None)
  Receive Date: 20120716
  Receipt Date: 20120702
  Transmission Date: 20120928
  Serious: No
  Sender: FDA-Public Use
  Company Number: US-ASTRAZENECA-2012SE44971

PATIENT
  Age: 77 Year
  Sex: Male
  Weight: 86.2 kg

DRUGS (6)
  1. SPIRIVA [Concomitant]
  2. HYDROCHLOROT [Concomitant]
  3. ATORVASTATIN [Concomitant]
  4. SYMBICORT [Suspect]
     Indication: CHRONIC OBSTRUCTIVE PULMONARY DISEASE
     Dosage: 160/4.5, 2 PUFFS BID
     Route: 055
  5. AMLODIPINE [Concomitant]
  6. ALFUZOFIN [Concomitant]

REACTIONS (3)
  - THROAT IRRITATION [None]
  - DYSPHONIA [None]
  - INTENTIONAL DRUG MISUSE [None]
